FAERS Safety Report 4425430-3 (Version None)
Quarter: 2004Q3

REPORT INFORMATION
  Report Type: 
  Country: None (occurrence: None)
  Receive Date: 20040809
  Receipt Date: 20040730
  Transmission Date: 20050211
  Serious: Yes (Hospitalization, Other)
  Sender: FDA-Public Use
  Company Number: KII-2004-0012721

PATIENT
  Age: 35 Year
  Sex: Male

DRUGS (7)
  1. OXYCONTIN [Suspect]
     Indication: DRUG USE FOR UNKNOWN INDICATION
     Dosage: SEE TEXT, ORAL
     Route: 048
  2. BENZODIAZEPINE DERIVATIVES [Suspect]
     Indication: DRUG USE FOR UNKNOWN INDICATION
     Dosage: ORAL
     Route: 048
  3. ZOLOFT [Suspect]
     Indication: DRUG USE FOR UNKNOWN INDICATION
     Dosage: 200 MG, DAILY
  4. ANTIPSYCHOTICS [Suspect]
     Indication: DRUG USE FOR UNKNOWN INDICATION
  5. TETRAHYDROCANNABINOL (TETRAHYDROCANNABINOL) [Suspect]
     Indication: DRUG USE FOR UNKNOWN INDICATION
  6. ASPIRIN [Suspect]
     Indication: DRUG USE FOR UNKNOWN INDICATION
  7. ACETAMINOPHEN [Suspect]
     Indication: DRUG USE FOR UNKNOWN INDICATION

REACTIONS (9)
  - AGITATION [None]
  - ALANINE AMINOTRANSFERASE INCREASED [None]
  - ASPARTATE AMINOTRANSFERASE INCREASED [None]
  - COMA [None]
  - ELECTROCARDIOGRAM QRS COMPLEX PROLONGED [None]
  - LUNG INFILTRATION [None]
  - MULTIPLE DRUG OVERDOSE [None]
  - PNEUMONIA [None]
  - THERAPY NON-RESPONDER [None]
